FAERS Safety Report 6022526-X (Version None)
Quarter: 2008Q4

REPORT INFORMATION
  Report Type: 
  Country: None (occurrence: None)
  Receive Date: 20081230
  Receipt Date: 20081222
  Transmission Date: 20090506
  Serious: Yes (Other)
  Sender: FDA-Public Use
  Company Number: US-BIOGENIDEC-2008BI034650

PATIENT
  Age: 49 Year
  Sex: Female

DRUGS (2)
  1. AVONEX [Suspect]
     Indication: MULTIPLE SCLEROSIS
     Route: 030
     Dates: start: 20030826
  2. AVONEX [Suspect]
     Route: 030
     Dates: start: 20000209, end: 20030819

REACTIONS (1)
  - CHRONIC LYMPHOCYTIC LEUKAEMIA [None]
